FAERS Safety Report 20161008 (Version 1)
Quarter: 2021Q4

REPORT INFORMATION
  Report Type: Spontaneous
  Country: US (occurrence: None)
  Receive Date: 20211207
  Receipt Date: 20211207
  Transmission Date: 20220303
  Serious: Yes (Life-Threatening)
  Sender: FDA-Public Use
  Company Number: None

PATIENT
  Age: 44 Year
  Sex: Female
  Weight: 164.25 kg

DRUGS (1)
  1. LUPRON DEPOT [Suspect]
     Active Substance: LEUPROLIDE ACETATE
     Indication: Uterine leiomyoma

REACTIONS (7)
  - Alopecia [None]
  - Hot flush [None]
  - Arthralgia [None]
  - Suicidal ideation [None]
  - Mood swings [None]
  - Depression [None]
  - Self-injurious ideation [None]

NARRATIVE: CASE EVENT DATE: 20211115
